FAERS Safety Report 23077861 (Version 2)
Quarter: 2023Q4

REPORT INFORMATION
  Report Type: Spontaneous
  Country: NL (occurrence: NL)
  Receive Date: 20231018
  Receipt Date: 20231102
  Transmission Date: 20240110
  Serious: Yes (Hospitalization, Other)
  Sender: FDA-Public Use
  Company Number: NL-AUROBINDO-AUR-APL-2023-061591

PATIENT
  Age: 33 Year
  Sex: Female
  Weight: 56.6 kg

DRUGS (8)
  1. VANCOMYCIN [Suspect]
     Active Substance: VANCOMYCIN
     Indication: Peritonitis
     Dosage: 2000 MILLIGRAM
     Route: 033
  2. VANCOMYCIN [Suspect]
     Active Substance: VANCOMYCIN
     Indication: Peritoneal dialysis
     Dosage: 1000 MILLIGRAM
     Route: 033
  3. VANCOMYCIN [Suspect]
     Active Substance: VANCOMYCIN
     Dosage: 500 MILLIGRAM
     Route: 033
  4. VANCOMYCIN [Suspect]
     Active Substance: VANCOMYCIN
     Dosage: 35.3 MILLIGRAM/KILOGRAM (LOADING DOSE OF 2000 MG VANCOMYCIN, DISSOLVED IN HER STANDARD DWELL VOLUME
     Route: 033
  5. CALCIUM CHLORIDE\DEXTROSE\MAGNESIUM CHLORIDE\SODIUM CHLORIDE [Concomitant]
     Active Substance: CALCIUM CHLORIDE\DEXTROSE\MAGNESIUM CHLORIDE\SODIUM CHLORIDE
     Indication: Peritoneal dialysis
     Dosage: 1500 MILLILITER
     Route: 033
  6. CLEMASTINE [Concomitant]
     Active Substance: CLEMASTINE
     Indication: Peritonitis
     Dosage: 2 MILLIGRAM
     Route: 048
  7. DEXAMETHASONE [Concomitant]
     Active Substance: DEXAMETHASONE
     Indication: Peritonitis
     Dosage: 8 MILLIGRAM
     Route: 048
  8. CEFAZOLIN [Concomitant]
     Active Substance: CEFAZOLIN
     Indication: Peritonitis
     Dosage: UNK
     Route: 033

REACTIONS (5)
  - Vancomycin infusion reaction [Recovering/Resolving]
  - Antibiotic level above therapeutic [Recovered/Resolved]
  - Flushing [Recovered/Resolved]
  - Lip swelling [Recovered/Resolved]
  - Rash pruritic [Recovered/Resolved]
